FAERS Safety Report 8367828-7 (Version None)
Quarter: 2012Q2

REPORT INFORMATION
  Report Type: 
  Country: None (occurrence: None)
  Receive Date: 20120517
  Receipt Date: 20120514
  Transmission Date: 20120825
  Serious: Yes (Other)
  Sender: FDA-Public Use
  Company Number: PHHY2012HU040901

PATIENT
  Sex: Female

DRUGS (12)
  1. ZOMETA [Suspect]
     Dosage: UNK UKN, UNK
  2. ZOMETA [Suspect]
     Dosage: UNK UKN, UNK
     Dates: start: 20101210, end: 20101210
  3. ZOMETA [Suspect]
     Dosage: UNK UKN, UNK
  4. ZOMETA [Suspect]
     Dosage: UNK UKN, UNK
  5. ZOMETA [Suspect]
     Dosage: UNK UKN, UNK
  6. ZOMETA [Suspect]
     Dosage: UNK UKN, UNK
  7. ZOMETA [Suspect]
     Dosage: UNK UKN, UNK
  8. ZOMETA [Suspect]
     Dosage: UNK UKN, UNK
  9. ZOMETA [Suspect]
     Indication: BONE DISORDER
     Dosage: UNK UKN, UNK
     Dates: start: 20100129
  10. ZOMETA [Suspect]
     Dosage: UNK UKN, UNK
  11. ZOMETA [Suspect]
     Dosage: UNK UKN, UNK
  12. ZOMETA [Suspect]
     Dosage: UNK UKN, UNK

REACTIONS (2)
  - CHRONIC SINUSITIS [None]
  - OSTEONECROSIS OF JAW [None]
